FAERS Safety Report 9569786 (Version 1)
Quarter: 2013Q3

REPORT INFORMATION
  Report Type: Spontaneous
  Country: US (occurrence: US)
  Receive Date: 20130930
  Receipt Date: 20130930
  Transmission Date: 20140515
  Serious: No
  Sender: FDA-Public Use
  Company Number: US-AMGEN-USASP2013065785

PATIENT
  Age: 79 Year
  Sex: Female

DRUGS (2)
  1. ENBREL [Suspect]
     Indication: RHEUMATOID ARTHRITIS
     Dosage: 50 MG, QWK
     Route: 065
     Dates: start: 20130805, end: 20130817
  2. METHOTREXATE [Concomitant]
     Dosage: 20 MG, QWK, DURATION 2 TO 3 MONTHS

REACTIONS (9)
  - Nerve injury [Recovered/Resolved]
  - Nervousness [Recovered/Resolved]
  - Mobility decreased [Not Recovered/Not Resolved]
  - Musculoskeletal stiffness [Not Recovered/Not Resolved]
  - Joint swelling [Not Recovered/Not Resolved]
  - Joint effusion [Not Recovered/Not Resolved]
  - Foreign body in eye [Unknown]
  - Eye pain [Unknown]
  - Injection site pain [Recovered/Resolved]
